FAERS Safety Report 16336306 (Version 1)
Quarter: 2019Q2

REPORT INFORMATION
  Report Type: Report from Study
  Country: AU (occurrence: AU)
  Receive Date: 20190521
  Receipt Date: 20190521
  Transmission Date: 20190711
  Serious: Yes (Hospitalization, Other)
  Sender: FDA-Public Use
  Company Number: AU-SUN PHARMACEUTICAL INDUSTRIES LTD-2019RR-208418

PATIENT
  Age: 44 Year
  Sex: Female

DRUGS (1)
  1. BACLOFEN. [Suspect]
     Active Substance: BACLOFEN
     Indication: ALCOHOL USE DISORDER
     Dosage: 800 MILLIGRAM, UNK
     Route: 065

REACTIONS (2)
  - Intentional overdose [Unknown]
  - Off label use [Unknown]
